FAERS Safety Report 7621958-3 (Version None)
Quarter: 2011Q3

REPORT INFORMATION
  Report Type: 
  Country: None (occurrence: None)
  Receive Date: 20110720
  Receipt Date: 20110309
  Transmission Date: 20111222
  Serious: Yes (Other)
  Sender: FDA-Public Use
  Company Number: GB-BAYER-2011-022889

PATIENT
  Age: 66 Year
  Sex: Male

DRUGS (5)
  1. ACETYLSALICYLIC ACID SRT [Suspect]
     Indication: CEREBROVASCULAR ACCIDENT
     Dosage: DAILY DOSE 300 MG
     Route: 048
     Dates: start: 20110226, end: 20110226
  2. ALTEPLASE [Concomitant]
  3. AMLODIPINE [Concomitant]
  4. SIMVASTATIN [Concomitant]
  5. TERBINAFINE HCL [Concomitant]

REACTIONS (2)
  - URTICARIA [None]
  - ANGIOEDEMA [None]
